FAERS Safety Report 9677940 (Version 2)
Quarter: 2013Q4

REPORT INFORMATION
  Report Type: Report from Study
  Country: US (occurrence: US)
  Receive Date: 20131108
  Receipt Date: 20131205
  Transmission Date: 20140711
  Serious: Yes (Other)
  Sender: FDA-Public Use
  Company Number: US-JNJFOC-20131101920

PATIENT
  Sex: Female
  Weight: 68.04 kg

DRUGS (29)
  1. REMICADE [Suspect]
     Indication: ARTHRITIS
     Route: 042
     Dates: start: 2013
  2. REMICADE [Suspect]
     Indication: ARTHRITIS
     Route: 042
     Dates: start: 2012, end: 201308
  3. METHOTREXATE [Concomitant]
     Indication: ARTHRITIS
     Route: 048
     Dates: start: 2012
  4. OXYCONTIN [Concomitant]
     Indication: PAIN
     Route: 048
  5. NEXIUM [Concomitant]
     Route: 048
  6. PEPCID [Concomitant]
     Route: 048
  7. NADOLOL [Concomitant]
     Route: 048
  8. TRIAMTERENE HCTZ [Concomitant]
     Route: 048
  9. SYNTHROID [Concomitant]
     Route: 048
  10. EFFEXOR [Concomitant]
     Route: 065
  11. PROVIGIL [Concomitant]
     Route: 065
  12. KLOR CON [Concomitant]
     Route: 048
  13. LUNESTA [Concomitant]
     Route: 065
  14. LORAZEPAM [Concomitant]
     Route: 065
  15. ACTOS [Concomitant]
     Route: 065
  16. PREMARIN [Concomitant]
     Route: 065
  17. TIZANIDINE HCL [Concomitant]
     Route: 065
  18. FOLIC ACID [Concomitant]
     Route: 065
  19. PREDNISONE [Concomitant]
     Route: 065
  20. HYDROXYCHLOROQUINE SULPHATE [Concomitant]
     Route: 048
  21. GABAPENTIN [Concomitant]
     Route: 065
  22. VITAMIN B12 [Concomitant]
     Route: 050
  23. METHOTREXATE [Concomitant]
     Route: 050
  24. OXYCODONE [Concomitant]
     Route: 065
  25. CARAFATE [Concomitant]
     Route: 065
  26. LOMOTIL [Concomitant]
     Route: 065
  27. ONDANSETRON [Concomitant]
     Route: 048
  28. RESTASIS [Concomitant]
     Route: 065
  29. XIFAXAN [Concomitant]
     Route: 048

REACTIONS (4)
  - Bunion [Not Recovered/Not Resolved]
  - Drug effect decreased [Not Recovered/Not Resolved]
  - Fatigue [Recovered/Resolved]
  - Dizziness [Recovered/Resolved]
